FAERS Safety Report 5581990-0 (Version None)
Quarter: 2008Q1

REPORT INFORMATION
  Report Type: 
  Country: None (occurrence: None)
  Receive Date: 20080104
  Receipt Date: 20071112
  Transmission Date: 20080703
  Serious: Yes (Other)
  Sender: FDA-Public Use
  Company Number: US-PURDUE-USA_2007_0030249

PATIENT
  Sex: Male

DRUGS (1)
  1. OXYCONTIN [Suspect]
     Indication: PROCEDURAL PAIN
     Dosage: 800 MG, SEE TEXT
     Route: 048
     Dates: start: 20020316, end: 20020601

REACTIONS (9)
  - CONFUSIONAL STATE [None]
  - DIZZINESS [None]
  - DRY MOUTH [None]
  - INSOMNIA [None]
  - LUNG DISORDER [None]
  - MENTAL STATUS CHANGES [None]
  - PAIN [None]
  - ROTATOR CUFF SYNDROME [None]
  - SLEEP DISORDER [None]
